FAERS Safety Report 14382431 (Version 1)
Quarter: 2018Q1

REPORT INFORMATION
  Report Type: Spontaneous
  Country: US (occurrence: US)
  Receive Date: 20180112
  Receipt Date: 20180112
  Transmission Date: 20180509
  Serious: Yes (Death, Other)
  Sender: FDA-Public Use
  Company Number: US-SUNOVION-2018SUN000095

PATIENT
  Age: 73 Year
  Sex: Female

DRUGS (14)
  1. DONEPEZIL. [Suspect]
     Active Substance: DONEPEZIL
     Dosage: UNKNOWN
     Route: 048
  2. LEVOTHYROXINE SODIUM. [Suspect]
     Active Substance: LEVOTHYROXINE SODIUM
     Dosage: UNKNOWN
     Route: 048
  3. BACLOFEN. [Suspect]
     Active Substance: BACLOFEN
     Dosage: UNKNOWN
     Route: 048
  4. LATUDA [Suspect]
     Active Substance: LURASIDONE HYDROCHLORIDE
     Dosage: UNKNOWN
     Route: 048
  5. BENZTROPINE MESILATE [Suspect]
     Active Substance: BENZTROPINE MESYLATE
     Dosage: UNKNOWN
     Route: 048
  6. TRAZODONE HYDROCHLORIDE. [Suspect]
     Active Substance: TRAZODONE HYDROCHLORIDE
     Dosage: UNKNOWN
     Route: 048
  7. MELOXICAM. [Suspect]
     Active Substance: MELOXICAM
     Dosage: UNKNOWN
     Route: 048
  8. ZOLPIDEM [Suspect]
     Active Substance: ZOLPIDEM\ZOLPIDEM TARTRATE
     Dosage: UNKNOWN
     Route: 048
  9. OMEPRAZOLE. [Suspect]
     Active Substance: OMEPRAZOLE
     Dosage: UNKNOWN
     Route: 048
  10. VITAMIN D [Suspect]
     Active Substance: CHOLECALCIFEROL
     Dosage: UNKNOWN
     Route: 048
  11. METOPROLOL. [Suspect]
     Active Substance: METOPROLOL
     Dosage: UNKNOWN
     Route: 048
  12. DULOXETINE. [Suspect]
     Active Substance: DULOXETINE
     Dosage: UNKNOWN
     Route: 048
  13. ALPRAZOLAM. [Suspect]
     Active Substance: ALPRAZOLAM
     Dosage: UNKNOWN
     Route: 048
  14. SALICYLATES NOS [Suspect]
     Active Substance: UNSPECIFIED INGREDIENT
     Dosage: UNKNOWN
     Route: 048

REACTIONS (1)
  - Completed suicide [Fatal]
